FAERS Safety Report 16410073 (Version 1)
Quarter: 2019Q2

REPORT INFORMATION
  Report Type: Spontaneous
  Country: CZ (occurrence: CZ)
  Receive Date: 20190610
  Receipt Date: 20190610
  Transmission Date: 20190711
  Serious: Yes (Other)
  Sender: FDA-Public Use
  Company Number: CZ-TEVA-2019-CZ-1059141

PATIENT
  Age: 65 Year
  Sex: Female

DRUGS (3)
  1. FOLINIC ACID [Suspect]
     Active Substance: LEUCOVORIN
     Indication: COLORECTAL CANCER METASTATIC
     Dosage: IN FRAME OF FOLFOX4 REGIMEN
     Route: 042
     Dates: start: 201509, end: 2016
  2. OXALIPLATIN. [Suspect]
     Active Substance: OXALIPLATIN
     Indication: COLORECTAL CANCER METASTATIC
     Dosage: IN FRAME OF FOLFOX4 REGIMEN
     Route: 042
     Dates: start: 201509, end: 2016
  3. VECTIBIX [Suspect]
     Active Substance: PANITUMUMAB
     Route: 065

REACTIONS (8)
  - Neuropathy peripheral [Unknown]
  - Rash [Recovered/Resolved]
  - Nausea [Recovered/Resolved]
  - Anaemia [Unknown]
  - Hypertrichosis [Recovered/Resolved]
  - Thrombocytopenia [Unknown]
  - Epistaxis [Recovered/Resolved with Sequelae]
  - Herpes simplex [Unknown]

NARRATIVE: CASE EVENT DATE: 2015
